FAERS Safety Report 6180530-5 (Version None)
Quarter: 2009Q2

REPORT INFORMATION
  Report Type: 
  Country: None (occurrence: None)
  Receive Date: 20090504
  Receipt Date: 20090424
  Transmission Date: 20091009
  Serious: Yes (Hospitalization)
  Sender: FDA-Public Use
  Company Number: APP200900221

PATIENT
  Age: 62 Year
  Sex: Female
  Weight: 64 kg

DRUGS (8)
  1. HEPARIN SODIUM INJECTION [Suspect]
     Indication: CATHETERISATION CARDIAC
     Dosage: 70 IU/KG, ONCE, INTRAVENOUS BOLUS
     Route: 040
     Dates: start: 20090408, end: 20090408
  2. ACETYLCYSTEINE [Concomitant]
  3. BENADRYL [Concomitant]
  4. VERSED [Concomitant]
  5. FENTANYL-100 [Concomitant]
  6. ASPIRIN [Concomitant]
  7. CLOPIDOGREL [Concomitant]
  8. TOPROL-XL [Concomitant]

REACTIONS (3)
  - CARDIAC ENZYMES INCREASED [None]
  - CORONARY ARTERY STENOSIS [None]
  - SINUS BRADYCARDIA [None]
